FAERS Safety Report 24194532 (Version 2)
Quarter: 2024Q3

REPORT INFORMATION
  Report Type: Report from Study
  Country: GB (occurrence: GB)
  Receive Date: 20240809
  Receipt Date: 20240820
  Transmission Date: 20241017
  Serious: Yes (Other)
  Sender: SAMSUNG BIOEPIS
  Company Number: GB-SAMSUNG BIOEPIS-SB-2024-22221

PATIENT
  Age: 73 Year
  Sex: Female

DRUGS (2)
  1. IMRALDI [Suspect]
     Active Substance: ADALIMUMAB
     Indication: Uveitis
     Dosage: 40 MG/0.8 ML
     Route: 058
     Dates: start: 20231129
  2. AZATHIOPRINE [Suspect]
     Active Substance: AZATHIOPRINE
     Indication: Product used for unknown indication
     Route: 065

REACTIONS (9)
  - Immunodeficiency [Unknown]
  - Swelling face [Recovered/Resolved]
  - Pruritus [Recovered/Resolved]
  - Pain [Not Recovered/Not Resolved]
  - Constipation [Not Recovered/Not Resolved]
  - Poor quality sleep [Recovering/Resolving]
  - Osteoarthritis [Unknown]
  - Birdshot chorioretinopathy [Unknown]
  - Condition aggravated [Unknown]
